FAERS Safety Report 8677760 (Version 2)
Quarter: 2012Q4

REPORT INFORMATION
  Report Type: 
  Country: US (occurrence: US)
  Receive Date: 20120723
  Receipt Date: 20120918
  Transmission Date: 20130627
  Serious: Yes (Hospitalization)
  Sender: FDA-Public Use
  Company Number: US-BAYER-2012-072683

PATIENT
  Age: 58 Year
  Sex: Female
  Weight: 98 kg

DRUGS (5)
  1. BETASERON [Suspect]
     Indication: MULTIPLE SCLEROSIS
     Dosage: 0.3 ?g, QOD
     Dates: start: 1999
  2. GLIPIZIDE [Concomitant]
     Indication: DIABETES MELLITUS
     Dosage: 10 mg, QD
     Dates: start: 1999
  3. GABAPENTIN [Concomitant]
     Indication: HYPOAESTHESIA
     Dosage: 300 mg, TID
     Dates: start: 1996
  4. BACLOFEN [Concomitant]
     Indication: MUSCLE SPASMS
     Dosage: 10 mg, BID
     Dates: start: 1996
  5. LISINOPRIL [Concomitant]
     Indication: BLOOD PRESSURE ABNORMAL
     Dosage: 10 mg, QD
     Dates: start: 1996

REACTIONS (2)
  - Multiple sclerosis relapse [Recovering/Resolving]
  - Multiple sclerosis relapse [Recovering/Resolving]
